FAERS Safety Report 4639833-5 (Version None)
Quarter: 2005Q2

REPORT INFORMATION
  Report Type: 
  Country: None (occurrence: None)
  Receive Date: 20050415
  Receipt Date: 20050405
  Transmission Date: 20051028
  Serious: No
  Sender: FDA-Public Use
  Company Number: 05P-167-0291612-00

PATIENT
  Age: 35 Year
  Sex: Female

DRUGS (2)
  1. DEPAKOTE [Suspect]
     Indication: BIPOLAR DISORDER
     Dosage: 500 MG, 3 IN 1 D; DOSE REDUCED
     Dates: start: 20000101
  2. CHLORPROMAZINE HCL [Concomitant]

REACTIONS (3)
  - BLOOD FIBRINOGEN INCREASED [None]
  - LIVER FUNCTION TEST ABNORMAL [None]
  - PROTHROMBIN TIME PROLONGED [None]
